FAERS Safety Report 23247640 (Version 2)
Quarter: 2023Q4

REPORT INFORMATION
  Report Type: Spontaneous
  Country: DE (occurrence: DE)
  Receive Date: 20231130
  Receipt Date: 20231222
  Transmission Date: 20240110
  Serious: Yes (Hospitalization)
  Sender: FDA-Public Use
  Company Number: None

PATIENT
  Age: 28 Year
  Sex: Female
  Weight: 58 kg

DRUGS (2)
  1. XIFAXAN [Suspect]
     Active Substance: RIFAXIMIN
     Indication: Lactose tolerance test
     Dosage: ONE TABLET TWICE DAILY FOR TWO WEEKS
     Route: 048
     Dates: start: 20211206, end: 20211219
  2. ZAFRILLA [Concomitant]
     Indication: Product used for unknown indication
     Dates: start: 2019

REACTIONS (12)
  - Panic attack [Not Recovered/Not Resolved]
  - Social anxiety disorder [Not Recovered/Not Resolved]
  - Anxiety [Not Recovered/Not Resolved]
  - Crying [Unknown]
  - Aggression [Unknown]
  - Inappropriate affect [Unknown]
  - Social problem [Not Recovered/Not Resolved]
  - Palpitations [Not Recovered/Not Resolved]
  - Malaise [Unknown]
  - Restlessness [Not Recovered/Not Resolved]
  - Tremor [Not Recovered/Not Resolved]
  - Intentional product use issue [Unknown]

NARRATIVE: CASE EVENT DATE: 20211201
